FAERS Safety Report 8145784-4 (Version None)
Quarter: 2012Q1

REPORT INFORMATION
  Report Type: 
  Country: None (occurrence: None)
  Receive Date: 20120217
  Receipt Date: 20110215
  Transmission Date: 20120608
  Serious: No
  Sender: FDA-Public Use
  Company Number: US-ABBOTT-11P-163-0705416-00

PATIENT
  Sex: Male
  Weight: 65.83 kg

DRUGS (3)
  1. SIMCOR [Suspect]
     Indication: BLOOD CHOLESTEROL INCREASED
     Dosage: 750/20 MG AT BEDTIME
     Route: 048
     Dates: start: 20090801
  2. ASPIRIN [Concomitant]
     Indication: PRODUCT USED FOR UNKNOWN INDICATION
     Dosage: 30 MINUTES PRIOR TO DOSE OF SIMCOR
     Route: 048
  3. SIMCOR [Suspect]
     Dosage: 750/20 MG BUT PATIENT NOT TAKING CONSISTENTLY
     Route: 048

REACTIONS (6)
  - PRURITUS [None]
  - PARAESTHESIA [None]
  - FLUSHING [None]
  - ERYTHEMA [None]
  - DRUG DOSE OMISSION [None]
  - FEELING HOT [None]
